FAERS Safety Report 20599738 (Version 1)
Quarter: 2022Q1

REPORT INFORMATION
  Report Type: Spontaneous
  Country: JP (occurrence: JP)
  Receive Date: 20220316
  Receipt Date: 20220316
  Transmission Date: 20220423
  Serious: Yes (Other)
  Sender: FDA-Public Use
  Company Number: JP-SUN PHARMACEUTICAL INDUSTRIES LTD-2022RR-329950

PATIENT
  Age: 39 Year
  Sex: Female
  Weight: 36 kg

DRUGS (6)
  1. ARIPIPRAZOLE [Suspect]
     Active Substance: ARIPIPRAZOLE
     Indication: Bipolar I disorder
     Dosage: 24 MILLIGRAM, DAILY
     Route: 065
  2. OLANZAPINE [Suspect]
     Active Substance: OLANZAPINE
     Indication: Bipolar I disorder
     Dosage: UNK
     Route: 065
  3. QUETIAPINE [Suspect]
     Active Substance: QUETIAPINE
     Indication: Bipolar I disorder
     Dosage: 200 MILLIGRAM, DAILY
     Route: 065
  4. LITHIUM [Suspect]
     Active Substance: LITHIUM
     Indication: Bipolar I disorder
     Dosage: 200 MILLIGRAM, DAILY
     Route: 065
  5. LITHIUM [Suspect]
     Active Substance: LITHIUM
     Dosage: 500 MILLIGRAM, DAILY
     Route: 065
  6. ZOTEPINE [Suspect]
     Active Substance: ZOTEPINE
     Indication: Bipolar I disorder
     Dosage: UNK
     Route: 065

REACTIONS (8)
  - Thyroiditis [Unknown]
  - Drug ineffective [Unknown]
  - Arthralgia [Unknown]
  - Tremor [Unknown]
  - Salivary hypersecretion [Unknown]
  - Dysphagia [Unknown]
  - Blood creatine phosphokinase increased [Unknown]
  - Disease recurrence [Unknown]
